FAERS Safety Report 9803900 (Version 2)
Quarter: 2014Q1

REPORT INFORMATION
  Report Type: Spontaneous
  Country: US (occurrence: US)
  Receive Date: 20140108
  Receipt Date: 20140213
  Transmission Date: 20141002
  Serious: Yes (Death, Other)
  Sender: FDA-Public Use
  Company Number: US-JNJFOC-20140100713

PATIENT
  Sex: 0

DRUGS (7)
  1. DOXORUBICIN [Suspect]
     Indication: DIFFUSE LARGE B-CELL LYMPHOMA
     Dosage: (DAY [D]1, 21-DAY CYCLES [C] 1-6)
     Route: 042
  2. DOXORUBICIN [Suspect]
     Indication: DIFFUSE LARGE B-CELL LYMPHOMA
     Dosage: (DAY [D]1, 21-DAY CYCLES [C] 1-6)
     Route: 065
  3. CYCLOPHOSPHAMIDE [Suspect]
     Indication: DIFFUSE LARGE B-CELL LYMPHOMA
     Dosage: (DAY [D]1, 21-DAY CYCLES [C] 1?6)
     Route: 065
  4. VINCRISTINE [Suspect]
     Indication: DIFFUSE LARGE B-CELL LYMPHOMA
     Dosage: (DAY [D]1, 21-DAY CYCLES [C] 1?6)
     Route: 065
  5. PREDNISONE [Suspect]
     Indication: DIFFUSE LARGE B-CELL LYMPHOMA
     Dosage: (DAY [D]1, 21-DAY CYCLES [C] 1?6)
     Route: 065
  6. OBINUTUZUMAB [Suspect]
     Indication: DIFFUSE LARGE B-CELL LYMPHOMA
     Dosage: D1, 21-D C 1-8 PLUS ADDITIONAL DOSES ON D8 AND D15 OF C1
     Route: 042
  7. GRANULOCYTE COLONY-STIMULATING FACTOR NOS [Concomitant]
     Indication: PROPHYLAXIS
     Route: 065

REACTIONS (10)
  - Diffuse large B-cell lymphoma [Fatal]
  - Sudden cardiac death [Fatal]
  - West Nile viral infection [Fatal]
  - Sepsis [Unknown]
  - Febrile neutropenia [Unknown]
  - Pneumonia [Unknown]
  - Anaemia [Unknown]
  - Thrombocytopenia [Unknown]
  - Neutrophil count decreased [Unknown]
  - Infusion related reaction [Unknown]
